APPROVED DRUG PRODUCT: TASMAR
Active Ingredient: TOLCAPONE
Strength: 100MG
Dosage Form/Route: TABLET;ORAL
Application: N020697 | Product #001 | TE Code: AB
Applicant: BAUSCH HEALTH US LLC
Approved: Jan 29, 1998 | RLD: Yes | RS: Yes | Type: RX